FAERS Safety Report 13498912 (Version 1)
Quarter: 2017Q2

REPORT INFORMATION
  Report Type: Spontaneous
  Country: US (occurrence: US)
  Receive Date: 20170430
  Receipt Date: 20170430
  Transmission Date: 20170830
  Serious: No
  Sender: FDA-Public Use
  Company Number: None

PATIENT
  Age: 51 Year
  Sex: Female
  Weight: 119.2 kg

DRUGS (7)
  1. OXYBUTYNIN [Concomitant]
     Active Substance: OXYBUTYNIN
  2. ROPINEROLE [Concomitant]
     Active Substance: ROPINIROLE
  3. ALEVE [Concomitant]
     Active Substance: NAPROXEN SODIUM
  4. ESCITALOPRAM [Concomitant]
     Active Substance: ESCITALOPRAM OXALATE
  5. HYDROCHLOROTHIAZIDE. [Concomitant]
     Active Substance: HYDROCHLOROTHIAZIDE
  6. HORIZANT [Suspect]
     Active Substance: GABAPENTIN ENACARBIL
     Indication: RESTLESS LEGS SYNDROME
     Dosage: ?          QUANTITY:1 TABLET(S);?
     Route: 048
     Dates: start: 20170426, end: 20170427
  7. LOSARTAN. [Concomitant]
     Active Substance: LOSARTAN

REACTIONS (16)
  - Somnambulism [None]
  - Dry mouth [None]
  - Insomnia [None]
  - Disturbance in attention [None]
  - Urinary incontinence [None]
  - Anxiety [None]
  - Tongue discolouration [None]
  - Swollen tongue [None]
  - Eating disorder [None]
  - Feeling abnormal [None]
  - Somnolence [None]
  - Fall [None]
  - Tongue disorder [None]
  - Coating in mouth [None]
  - Asthenia [None]
  - Restless legs syndrome [None]

NARRATIVE: CASE EVENT DATE: 20170427
